FAERS Safety Report 5807220-X (Version None)
Quarter: 2008Q3

REPORT INFORMATION
  Report Type: 
  Country: None (occurrence: None)
  Receive Date: 20080711
  Receipt Date: 20080703
  Transmission Date: 20090109
  Serious: Yes (Other)
  Sender: FDA-Public Use
  Company Number: B0528615A

PATIENT
  Sex: Female

DRUGS (7)
  1. ZINACEF [Suspect]
     Indication: PNEUMONIA
     Route: 065
     Dates: start: 20050104, end: 20050107
  2. CIPROFLOXACIN HCL [Suspect]
     Indication: PNEUMONIA
     Route: 065
     Dates: start: 20050104, end: 20050104
  3. CETIRIZIN [Concomitant]
     Route: 065
  4. ESCITALOPRAM [Concomitant]
     Indication: DEPRESSION
     Route: 048
  5. GENTAMICIN [Concomitant]
     Route: 065
  6. SURLID [Concomitant]
     Route: 065
  7. PANTOPRAZOLE SODIUM [Concomitant]
     Route: 065

REACTIONS (11)
  - ALVEOLITIS ALLERGIC [None]
  - GASTRIC HAEMORRHAGE [None]
  - HAEMATEMESIS [None]
  - HAEMATOCHEZIA [None]
  - INTERSTITIAL LUNG DISEASE [None]
  - MALAISE [None]
  - PRURITUS [None]
  - PULMONARY OEDEMA [None]
  - RASH [None]
  - THROMBOCYTOPENIA [None]
  - VASCULITIS [None]
